FAERS Safety Report 21947173 (Version 2)
Quarter: 2023Q1

REPORT INFORMATION
  Report Type: Spontaneous
  Country: US (occurrence: US)
  Receive Date: 20230202
  Receipt Date: 20230301
  Transmission Date: 20230417
  Serious: Yes (Other)
  Sender: FDA-Public Use
  Company Number: US-VERTEX PHARMACEUTICALS-2023-001467

PATIENT
  Age: 16 Year
  Sex: Male

DRUGS (11)
  1. TRIKAFTA [Suspect]
     Active Substance: ELEXACAFTOR\IVACAFTOR\TEZACAFTOR
     Indication: Cystic fibrosis
     Dosage: 1 TAB (ELEXACAFTOR 50 MG/TEZACAFTOR 25 MG/IVACAFTOR 37.5 MG) IN AM, 1 TAB (IVACAFTOR 75 MG) IN PM
     Route: 048
     Dates: start: 20220901
  2. TRIKAFTA [Suspect]
     Active Substance: ELEXACAFTOR\IVACAFTOR\TEZACAFTOR
     Dosage: 2 TABS (ELEXACAFTOR 50 MG/TEZACAFTOR 25 MG/IVACAFTOR 37.5 MG) IN AM, 1 TAB (IVACAFTOR 75 MG) IN PM
     Route: 048
     Dates: start: 20220914
  3. TRIKAFTA [Suspect]
     Active Substance: ELEXACAFTOR\IVACAFTOR\TEZACAFTOR
     Dosage: 1 TAB (ELEXACAFTOR 50 MG/TEZACAFTOR 25 MG/IVACAFTOR 37.5 MG) IN AM, 1 TAB (IVACAFTOR 75 MG) IN PM
     Route: 048
     Dates: start: 20220928
  4. ADDERALL [Concomitant]
     Active Substance: AMPHETAMINE ASPARTATE\AMPHETAMINE SULFATE\DEXTROAMPHETAMINE SACCHARATE\DEXTROAMPHETAMINE SULFATE
  5. LISINOPRIL [Concomitant]
     Active Substance: LISINOPRIL
  6. SENNALAX [Concomitant]
  7. OMEPRAZOLE [Concomitant]
     Active Substance: OMEPRAZOLE
  8. PULMOZYME [Concomitant]
     Active Substance: DORNASE ALFA
  9. SODIUM CHLORIDE [Concomitant]
     Active Substance: SODIUM CHLORIDE
  10. HUMULINE [Concomitant]
  11. FERROUS SULFATE [Concomitant]
     Active Substance: FERROUS SULFATE

REACTIONS (4)
  - Suicidal behaviour [Recovered/Resolved]
  - Irritability [Recovering/Resolving]
  - Affective disorder [Recovered/Resolved]
  - Depression [Recovering/Resolving]

NARRATIVE: CASE EVENT DATE: 20220925
